FAERS Safety Report 8290348-5 (Version None)
Quarter: 2012Q2

REPORT INFORMATION
  Report Type: 
  Country: None (occurrence: None)
  Receive Date: 20120417
  Receipt Date: 20120403
  Transmission Date: 20120825
  Serious: Yes (Other)
  Sender: FDA-Public Use
  Company Number: SE-MYLANLABS-2012S1003208

PATIENT
  Sex: Female

DRUGS (6)
  1. ZOPICLONE [Suspect]
     Indication: SLEEP DISORDER
     Dates: start: 20100801
  2. MIANSERIN [Suspect]
     Indication: SLEEP DISORDER
     Dates: start: 20111101
  3. OXAZEPAM [Suspect]
     Indication: ANXIETY
     Dates: start: 20100801
  4. CLOMIPRAMINE HCL [Suspect]
  5. INDERAL [Concomitant]
     Indication: PRODUCT USED FOR UNKNOWN INDICATION
  6. CLOMIPRAMINE HCL [Suspect]
     Indication: PRODUCT USED FOR UNKNOWN INDICATION

REACTIONS (8)
  - FATIGUE [None]
  - SLEEP DISORDER [None]
  - SOMNOLENCE [None]
  - NAUSEA [None]
  - RESTLESS LEGS SYNDROME [None]
  - DRUG INEFFECTIVE [None]
  - PAIN IN EXTREMITY [None]
  - TREMOR [None]
